FAERS Safety Report 9685601 (Version 1)
Quarter: 2013Q4

REPORT INFORMATION
  Report Type: Spontaneous
  Country: US (occurrence: US)
  Receive Date: 20131113
  Receipt Date: 20131113
  Transmission Date: 20140711
  Serious: Yes (Hospitalization)
  Sender: FDA-Public Use
  Company Number: US-ASTRAZENECA-2013SE81175

PATIENT
  Age: 67 Year
  Sex: Female
  Weight: 92.2 kg

DRUGS (5)
  1. LISINOPRIL [Suspect]
     Indication: HYPERTENSION
     Route: 048
     Dates: start: 20010606
  2. DILITIAZEM [Suspect]
     Indication: HYPERTENSION
     Route: 048
     Dates: start: 20131002, end: 2013
  3. CINC424B2301 [Suspect]
     Indication: POLYCYTHAEMIA VERA
     Route: 048
     Dates: start: 20110627
  4. METFORMIN [Concomitant]
     Dates: start: 20110822
  5. ALLOPURINOL [Concomitant]
     Dates: start: 20110602

REACTIONS (1)
  - Hypotension [Recovered/Resolved]
